FAERS Safety Report 15164509 (Version 1)
Quarter: 2018Q3

REPORT INFORMATION
  Report Type: Report from Study
  Country: IE (occurrence: IE)
  Receive Date: 20180719
  Receipt Date: 20180719
  Transmission Date: 20181010
  Serious: Yes (Other)
  Sender: FDA-Public Use
  Company Number: IE-AMGEN-IRLSL2018098203

PATIENT
  Age: 55 Year
  Sex: Male

DRUGS (9)
  1. NEULASTA [Suspect]
     Active Substance: PEGFILGRASTIM
     Indication: PRODUCT USED FOR UNKNOWN INDICATION
     Dosage: 6 MG, Q3WK (POST CHEMOTHERAPY 3 WEEKLY)
     Route: 058
  2. LYRICA [Concomitant]
     Active Substance: PREGABALIN
     Dosage: 50 MG, QD
     Route: 050
  3. AMLODIPINE [Concomitant]
     Active Substance: AMLODIPINE BESYLATE
     Dosage: 5 MG, QD
     Route: 050
  4. DEXAMETHASONE. [Concomitant]
     Active Substance: DEXAMETHASONE
     Dosage: 4 MG, BID
     Route: 050
  5. PANTAFLUX [Concomitant]
     Dosage: 40 MG, QD
     Route: 050
  6. COVERSYL [Concomitant]
     Active Substance: PERINDOPRIL
     Dosage: 5 MG, QD
     Route: 050
  7. VALOID [Concomitant]
     Active Substance: CYCLIZINE HYDROCHLORIDE
     Dosage: 50 MG, AS NECESSARY
     Route: 050
  8. ONDANSETRON [Concomitant]
     Active Substance: ONDANSETRON
     Dosage: 4 MG, AS NECESSARY
     Route: 050
  9. NUPRIN [Concomitant]
     Active Substance: IBUPROFEN
     Dosage: 75 MG, QD
     Route: 050

REACTIONS (2)
  - Bone pain [Recovered/Resolved]
  - Deep vein thrombosis [Recovered/Resolved]

NARRATIVE: CASE EVENT DATE: 2018
